FAERS Safety Report 5269913-5 (Version None)
Quarter: 2007Q1

REPORT INFORMATION
  Report Type: 
  Country: None (occurrence: None)
  Receive Date: 20061218
  Receipt Date: 20060627
  Transmission Date: 20070707
  Serious: Yes (Other)
  Sender: FDA-Public Use
  Company Number: US200607001609

PATIENT
  Age: 82 Year
  Sex: Female
  Weight: 90.7 kg

DRUGS (10)
  1. HUMALOG MIX 75/25 [Suspect]
     Dosage: SEE IMAGE
     Dates: start: 20060420, end: 20060507
  2. HUMALOG MIX 75/25 [Suspect]
     Dosage: SEE IMAGE
     Dates: start: 20060508, end: 20060611
  3. HUMALOG MIX 75/25 [Suspect]
     Dosage: SEE IMAGE
     Dates: start: 20060612
  4. BYETTA (EXENATIDE) PEN, DISPOSABLE [Concomitant]
  5. ACTOS (PIOGLITAZONE UNKNOWN FORMULATION) [Concomitant]
  6. AMARYL /SWE/(GLIMEPIRIDE) [Concomitant]
  7. CITRACAL (CALCIUM CITRATE) [Concomitant]
  8. LASIX [Concomitant]
  9. COREG [Concomitant]
  10. CELEBREX /UNK/(CELECOXIB) [Concomitant]

REACTIONS (3)
  - BLOOD GLUCOSE DECREASED [None]
  - BLOOD GLUCOSE INCREASED [None]
  - LOSS OF CONSCIOUSNESS [None]
